FAERS Safety Report 7749994-7 (Version None)
Quarter: 2011Q3

REPORT INFORMATION
  Report Type: 
  Country: None (occurrence: None)
  Receive Date: 20110912
  Receipt Date: 20110905
  Transmission Date: 20111222
  Serious: Yes (Other)
  Sender: FDA-Public Use
  Company Number: 2011SP042008

PATIENT
  Age: 76 Year
  Sex: Male

DRUGS (6)
  1. PRAMIPEXOLE DIHYDROCHLORIDE [Concomitant]
  2. TRICYCLIC [Concomitant]
  3. REUPTAKE INHIBITORS [Concomitant]
  4. SELECTIVE SEROTONIN [Concomitant]
  5. MIRTAZAPINE [Suspect]
     Indication: DEPRESSION
     Dosage: PO
     Route: 048
  6. ANTIDEPRESSANTS [Concomitant]

REACTIONS (3)
  - PARKINSONISM [None]
  - MUSCLE ATROPHY [None]
  - DEPRESSION [None]
